FAERS Safety Report 11212536 (Version 1)
Quarter: 2015Q2

REPORT INFORMATION
  Report Type: Spontaneous
  Country: US (occurrence: None)
  Receive Date: 20150622
  Receipt Date: 20150622
  Transmission Date: 20150821
  Serious: No
  Sender: FDA-Public Use
  Company Number: None

PATIENT
  Age: 53 Year
  Sex: Male
  Weight: 88.5 kg

DRUGS (1)
  1. HYLAN G-F 20 [Suspect]
     Active Substance: HYALURONATE SODIUM
     Indication: PAIN
     Route: 058
     Dates: start: 20130514, end: 20130514

REACTIONS (4)
  - Inflammation [None]
  - Joint swelling [None]
  - Arthralgia [None]
  - Arthritis [None]

NARRATIVE: CASE EVENT DATE: 20130514
